FAERS Safety Report 6810115-6 (Version None)
Quarter: 2010Q2

REPORT INFORMATION
  Report Type: 
  Country: None (occurrence: None)
  Receive Date: 20100630
  Receipt Date: 20100623
  Transmission Date: 20101027
  Serious: Yes (Other)
  Sender: FDA-Public Use
  Company Number: US-ROCHE-711918

PATIENT
  Sex: Male

DRUGS (6)
  1. KLONOPIN [Suspect]
     Indication: DRUG USE FOR UNKNOWN INDICATION
     Route: 065
  2. PAXIL [Suspect]
     Indication: POST-TRAUMATIC STRESS DISORDER
     Dosage: IN MORNING
     Route: 048
  3. PAXIL [Suspect]
     Route: 048
  4. PAXIL [Suspect]
     Route: 048
  5. ETHANOL [Suspect]
     Indication: ALCOHOL USE
     Route: 048
  6. INTERFERON ALFA [Concomitant]
     Indication: HEPATITIS B
     Dosage: INTERFERON

REACTIONS (2)
  - BLOOD ALCOHOL INCREASED [None]
  - DISORIENTATION [None]
